FAERS Safety Report 20310670 (Version 3)
Quarter: 2022Q1

REPORT INFORMATION
  Report Type: Spontaneous
  Country: US (occurrence: US)
  Receive Date: 20220107
  Receipt Date: 20220304
  Transmission Date: 20220423
  Serious: Yes (Hospitalization, Other)
  Sender: FDA-Public Use
  Company Number: US-SA-2021SA436473

PATIENT
  Age: 69 Year
  Sex: Female

DRUGS (11)
  1. ENOXAPARIN SODIUM [Suspect]
     Active Substance: ENOXAPARIN SODIUM
     Indication: Deep vein thrombosis
     Dosage: 100 MG, QD ,INJECTION, LIQUID (SOLUTION)
  2. ENOXAPARIN SODIUM [Suspect]
     Active Substance: ENOXAPARIN SODIUM
     Dosage: 40 MG, QD
  3. PHENOBARBITAL [Suspect]
     Active Substance: PHENOBARBITAL
  4. ELIQUIS [Suspect]
     Active Substance: APIXABAN
  5. TEGRETOL [Suspect]
     Active Substance: CARBAMAZEPINE
  6. DILANTIN [Suspect]
     Active Substance: PHENYTOIN
  7. DEXAMETHASONE [Concomitant]
     Active Substance: DEXAMETHASONE
  8. RITALIN [Concomitant]
     Active Substance: METHYLPHENIDATE HYDROCHLORIDE
  9. NAPROXEN [Concomitant]
     Active Substance: NAPROXEN
  10. COUMADIN [Concomitant]
     Active Substance: WARFARIN SODIUM
  11. HEPARIN [Concomitant]
     Active Substance: HEPARIN SODIUM

REACTIONS (30)
  - Pulmonary infarction [Unknown]
  - COVID-19 [Unknown]
  - Deep vein thrombosis [Not Recovered/Not Resolved]
  - Pulmonary embolism [Not Recovered/Not Resolved]
  - Chest pain [Not Recovered/Not Resolved]
  - Myasthenia gravis [Not Recovered/Not Resolved]
  - Seizure [Not Recovered/Not Resolved]
  - Autism spectrum disorder [Not Recovered/Not Resolved]
  - Arrhythmia [Unknown]
  - Infarction [Not Recovered/Not Resolved]
  - Thrombosis [Not Recovered/Not Resolved]
  - Haemorrhage [Not Recovered/Not Resolved]
  - Thrombocytosis [Not Recovered/Not Resolved]
  - Visual impairment [Unknown]
  - Full blood count decreased [Unknown]
  - Brain natriuretic peptide increased [Unknown]
  - Mean cell haemoglobin increased [Unknown]
  - Fibrin D dimer increased [Unknown]
  - Myositis [Not Recovered/Not Resolved]
  - Neoplasm [Not Recovered/Not Resolved]
  - Dyspnoea [Not Recovered/Not Resolved]
  - Faeces discoloured [Not Recovered/Not Resolved]
  - Eye disorder [Not Recovered/Not Resolved]
  - Bone pain [Not Recovered/Not Resolved]
  - Petechiae [Not Recovered/Not Resolved]
  - Heart rate increased [Not Recovered/Not Resolved]
  - Cough [Not Recovered/Not Resolved]
  - Diarrhoea [Not Recovered/Not Resolved]
  - Unevaluable event [Not Recovered/Not Resolved]
  - Drug ineffective [Unknown]
